FAERS Safety Report 7763767-0 (Version None)
Quarter: 2011Q3

REPORT INFORMATION
  Report Type: 
  Country: None (occurrence: None)
  Receive Date: 20110919
  Receipt Date: 20110915
  Transmission Date: 20111222
  Serious: Yes (Death, Other)
  Sender: FDA-Public Use
  Company Number: 2008SP013036

PATIENT
  Age: 47 Year
  Sex: Female
  Weight: 49 kg

DRUGS (23)
  1. LANSOPRAZOLE [Concomitant]
  2. NITRAZEPAM [Concomitant]
  3. RIBOFLAVIN TAB [Concomitant]
  4. ALPRAZOLAM [Concomitant]
  5. LAXOBERON [Concomitant]
  6. TEMODAL [Suspect]
     Indication: ANAPLASTIC ASTROCYTOMA
     Dosage: 75 MG/M2;QD;PO 150 MG/M2;QD;PO 200 MG/M2;QD;PO
     Route: 048
     Dates: start: 20071117, end: 20071121
  7. TEMODAL [Suspect]
     Indication: ANAPLASTIC ASTROCYTOMA
     Dosage: 75 MG/M2;QD;PO 150 MG/M2;QD;PO 200 MG/M2;QD;PO
     Route: 048
     Dates: start: 20080312, end: 20080316
  8. TEMODAL [Suspect]
     Indication: ANAPLASTIC ASTROCYTOMA
     Dosage: 75 MG/M2;QD;PO 150 MG/M2;QD;PO 200 MG/M2;QD;PO
     Route: 048
     Dates: start: 20070711, end: 20070821
  9. TEMODAL [Suspect]
     Indication: ANAPLASTIC ASTROCYTOMA
     Dosage: 75 MG/M2;QD;PO 150 MG/M2;QD;PO 200 MG/M2;QD;PO
     Route: 048
     Dates: start: 20081226, end: 20081230
  10. TEMODAL [Suspect]
     Indication: ANAPLASTIC ASTROCYTOMA
     Dosage: 75 MG/M2;QD;PO 150 MG/M2;QD;PO 200 MG/M2;QD;PO
     Route: 048
     Dates: start: 20071221, end: 20071225
  11. TEMODAL [Suspect]
     Indication: ANAPLASTIC ASTROCYTOMA
     Dosage: 75 MG/M2;QD;PO 150 MG/M2;QD;PO 200 MG/M2;QD;PO
     Route: 048
     Dates: start: 20080815, end: 20080819
  12. TEMODAL [Suspect]
     Indication: ANAPLASTIC ASTROCYTOMA
     Dosage: 75 MG/M2;QD;PO 150 MG/M2;QD;PO 200 MG/M2;QD;PO
     Route: 048
     Dates: start: 20080509, end: 20080513
  13. TEMODAL [Suspect]
     Indication: ANAPLASTIC ASTROCYTOMA
     Dosage: 75 MG/M2;QD;PO 150 MG/M2;QD;PO 200 MG/M2;QD;PO
     Route: 048
     Dates: start: 20070921, end: 20070925
  14. TEMODAL [Suspect]
     Indication: ANAPLASTIC ASTROCYTOMA
     Dosage: 75 MG/M2;QD;PO 150 MG/M2;QD;PO 200 MG/M2;QD;PO
     Route: 048
     Dates: start: 20080118, end: 20080122
  15. TEMODAL [Suspect]
     Indication: ANAPLASTIC ASTROCYTOMA
     Dosage: 75 MG/M2;QD;PO 150 MG/M2;QD;PO 200 MG/M2;QD;PO
     Route: 048
     Dates: start: 20090106, end: 20090310
  16. TEMODAL [Suspect]
     Indication: ANAPLASTIC ASTROCYTOMA
     Dosage: 75 MG/M2;QD;PO 150 MG/M2;QD;PO 200 MG/M2;QD;PO
     Route: 048
     Dates: start: 20071020, end: 20071024
  17. TEMODAL [Suspect]
     Indication: ANAPLASTIC ASTROCYTOMA
     Dosage: 75 MG/M2;QD;PO 150 MG/M2;QD;PO 200 MG/M2;QD;PO
     Route: 048
     Dates: start: 20080704, end: 20080708
  18. TEMODAL [Suspect]
     Indication: ANAPLASTIC ASTROCYTOMA
     Dosage: 75 MG/M2;QD;PO 150 MG/M2;QD;PO 200 MG/M2;QD;PO
     Route: 048
     Dates: start: 20081024, end: 20081028
  19. TEMODAL [Suspect]
     Indication: ANAPLASTIC ASTROCYTOMA
     Dosage: 75 MG/M2;QD;PO 150 MG/M2;QD;PO 200 MG/M2;QD;PO
     Route: 048
     Dates: start: 20090522, end: 20090526
  20. DEPAKENE [Suspect]
     Indication: PROPHYLAXIS
     Dosage: ;PO
     Route: 048
     Dates: end: 20090716
  21. SELBEX [Concomitant]
  22. MAGMITT [Concomitant]
  23. NAVOBAN [Concomitant]

REACTIONS (8)
  - METASTASES TO LUNG [None]
  - NEUTROPHIL COUNT DECREASED [None]
  - LUNG ADENOCARCINOMA STAGE IV [None]
  - BONE MARROW FAILURE [None]
  - PLATELET COUNT DECREASED [None]
  - MYELODYSPLASTIC SYNDROME [None]
  - LYMPHOCYTE COUNT DECREASED [None]
  - WHITE BLOOD CELL COUNT DECREASED [None]
